FAERS Safety Report 16216289 (Version 3)
Quarter: 2019Q2

REPORT INFORMATION
  Report Type: Spontaneous
  Country: BR (occurrence: BR)
  Receive Date: 20190419
  Receipt Date: 20190423
  Transmission Date: 20190711
  Serious: Yes (Death, Hospitalization)
  Sender: FDA-Public Use
  Company Number: BR-TEVA-2019-BR-1035777

PATIENT
  Sex: Female
  Weight: 47.1 kg

DRUGS (7)
  1. TEVAOXALI [Suspect]
     Active Substance: OXALIPLATIN
     Indication: CHOLANGIOCARCINOMA
  2. CALCIUM FOLINATE [Concomitant]
     Active Substance: LEUCOVORIN CALCIUM
     Dates: start: 20181025
  3. LEVOTHYROXINE. [Concomitant]
     Active Substance: LEVOTHYROXINE
  4. TEVAOXALI [Suspect]
     Active Substance: OXALIPLATIN
     Indication: HEPATIC CANCER
     Dosage: 115 MG UNIQUE DOSAGE
     Route: 042
     Dates: start: 20190307, end: 20190307
  5. ATORVASTATIN [Concomitant]
     Active Substance: ATORVASTATIN
  6. FLUOXETINE [Concomitant]
     Active Substance: FLUOXETINE HYDROCHLORIDE
  7. FLUOROURACIL. [Concomitant]
     Active Substance: FLUOROURACIL
     Dates: start: 20181025

REACTIONS (5)
  - Oxygen saturation decreased [Unknown]
  - Stridor [Unknown]
  - Cyanosis [Unknown]
  - Cholangiocarcinoma [Fatal]
  - Acute respiratory failure [Fatal]
